FAERS Safety Report 9516256 (Version 2)
Quarter: 2013Q3

REPORT INFORMATION
  Report Type: Spontaneous
  Country: US (occurrence: US)
  Receive Date: 20130911
  Receipt Date: 20130916
  Transmission Date: 20140515
  Serious: Yes (Hospitalization, Other)
  Sender: FDA-Public Use
  Company Number: US-ROCHE-1273572

PATIENT
  Age: 15 Year
  Sex: Male

DRUGS (3)
  1. XOLAIR [Suspect]
     Indication: ASTHMA
     Dosage: 1.2 VIAL
     Route: 058
  2. PRILOSEC [Concomitant]
  3. ZOFRAN [Concomitant]
     Indication: NAUSEA

REACTIONS (4)
  - Abdominal pain [Recovered/Resolved]
  - Cholecystectomy [Recovered/Resolved]
  - Wheezing [Not Recovered/Not Resolved]
  - Nausea [Unknown]
